FAERS Safety Report 6137510-5 (Version None)
Quarter: 2009Q1

REPORT INFORMATION
  Report Type: 
  Country: None (occurrence: None)
  Receive Date: 20090326
  Receipt Date: 20090311
  Transmission Date: 20090719
  Serious: Yes (Disabling)
  Sender: FDA-Public Use
  Company Number: 000552

PATIENT
  Sex: Male

DRUGS (1)
  1. NEUPRO [Suspect]
     Dosage: (4 MG QD TRANSDERMAL)
     Route: 062

REACTIONS (4)
  - DRUG EFFECT DECREASED [None]
  - MOVEMENT DISORDER [None]
  - PARKINSON'S DISEASE [None]
  - TREMOR [None]
